FAERS Safety Report 12836178 (Version 6)
Quarter: 2017Q1

REPORT INFORMATION
  Report Type: Spontaneous
  Country: CA (occurrence: CA)
  Receive Date: 20161011
  Receipt Date: 20170324
  Transmission Date: 20170428
  Serious: Yes (Other)
  Sender: FDA-Public Use
  Company Number: CA-GLAXOSMITHKLINE-CA2016GSK069161

PATIENT
  Age: 56 Year
  Sex: Female

DRUGS (8)
  1. NUCALA [Suspect]
     Active Substance: MEPOLIZUMAB
     Indication: ASTHMA
     Dosage: 100 MG, Z
     Route: 042
     Dates: start: 20160418
  2. NUCALA [Suspect]
     Active Substance: MEPOLIZUMAB
     Dosage: 100 MG, Z
     Route: 042
     Dates: start: 20161104
  3. NUCALA [Suspect]
     Active Substance: MEPOLIZUMAB
     Dosage: 100 MG, Z
     Route: 042
     Dates: start: 20170217
  4. NUCALA [Suspect]
     Active Substance: MEPOLIZUMAB
     Dosage: 100 MG, Z
     Route: 042
  5. NUCALA [Suspect]
     Active Substance: MEPOLIZUMAB
     Dosage: 100 MG, Z
     Route: 042
     Dates: start: 20170120
  6. NUCALA [Suspect]
     Active Substance: MEPOLIZUMAB
     Dosage: UNK
     Dates: start: 20170317
  7. VENTOLIN [Concomitant]
     Active Substance: ALBUTEROL SULFATE
     Indication: ASTHMA
     Dosage: UNK
  8. NUCALA [Suspect]
     Active Substance: MEPOLIZUMAB
     Dosage: 100 MG, Z
     Route: 042
     Dates: start: 20161202

REACTIONS (18)
  - Sneezing [Recovered/Resolved]
  - Secretion discharge [Recovering/Resolving]
  - Asthma [Unknown]
  - Lacrimation increased [Recovered/Resolved]
  - Fatigue [Unknown]
  - Headache [Unknown]
  - Eye pruritus [Recovered/Resolved]
  - Sinusitis [Unknown]
  - Ear disorder [Unknown]
  - Malaise [Unknown]
  - Pain in jaw [Unknown]
  - Nasal congestion [Recovered/Resolved]
  - Dyspepsia [Unknown]
  - Hypersensitivity [Recovered/Resolved]
  - Bronchitis [Recovering/Resolving]
  - Joint dislocation [Unknown]
  - Pulmonary congestion [Recovered/Resolved]
  - Secretion discharge [Unknown]

NARRATIVE: CASE EVENT DATE: 201604
